FAERS Safety Report 16265317 (Version 1)
Quarter: 2019Q2

REPORT INFORMATION
  Report Type: Spontaneous
  Country: US (occurrence: US)
  Receive Date: 20190501
  Receipt Date: 20190501
  Transmission Date: 20190711
  Serious: Yes (Hospitalization)
  Sender: FDA-Public Use
  Company Number: None

PATIENT
  Age: 61 Year
  Sex: Female

DRUGS (7)
  1. PERCOCET [Concomitant]
     Active Substance: ACETAMINOPHEN\OXYCODONE HYDROCHLORIDE
     Dates: start: 20160321
  2. OMEPRAZOLE. [Concomitant]
     Active Substance: OMEPRAZOLE
     Dates: start: 20160321
  3. GLATIRAMER [Suspect]
     Active Substance: GLATIRAMER
     Indication: MULTIPLE SCLEROSIS
     Dosage: ?          OTHER FREQUENCY:3 TIMES PER WEEK;?
     Route: 058
     Dates: start: 20180216
  4. QUINAPRIL. [Concomitant]
     Active Substance: QUINAPRIL
     Dates: start: 20160321
  5. ASPIRIN 81 [Concomitant]
     Active Substance: ASPIRIN
     Dates: start: 20180817
  6. IBUPROFEN. [Concomitant]
     Active Substance: IBUPROFEN
     Dates: start: 20160321
  7. LYRICA [Concomitant]
     Active Substance: PREGABALIN
     Dates: start: 20160321

REACTIONS (3)
  - Influenza [None]
  - Drug hypersensitivity [None]
  - Pneumonia [None]

NARRATIVE: CASE EVENT DATE: 20190201
